FAERS Safety Report 20021151 (Version 2)
Quarter: 2021Q4

REPORT INFORMATION
  Report Type: Spontaneous
  Country: US (occurrence: US)
  Receive Date: 20211101
  Receipt Date: 20211112
  Transmission Date: 20220303
  Serious: Yes (Hospitalization, Other)
  Sender: FDA-Public Use
  Company Number: US-TEVA-2021-US-1970940

PATIENT
  Age: 66 Year
  Sex: Male

DRUGS (1)
  1. PROAIR HFA [Suspect]
     Active Substance: ALBUTEROL SULFATE
     Dosage: INHALATION - AEROSOL
     Route: 065
     Dates: start: 2018

REACTIONS (8)
  - Dyspnoea [Unknown]
  - Hip surgery [Unknown]
  - Near death experience [Unknown]
  - Myocardial infarction [Unknown]
  - Feeling abnormal [Unknown]
  - Device malfunction [Unknown]
  - Pain [Unknown]
  - Device defective [Unknown]

NARRATIVE: CASE EVENT DATE: 20211001
